FAERS Safety Report 9384728 (Version 1)
Quarter: 2013Q3

REPORT INFORMATION
  Report Type: Report from Study
  Country: US (occurrence: US)
  Receive Date: 20130705
  Receipt Date: 20130705
  Transmission Date: 20140515
  Serious: Yes (Hospitalization)
  Sender: FDA-Public Use
  Company Number: US-ABBOTT-13P-163-1112087-00

PATIENT
  Age: 29 Year
  Sex: Female
  Weight: 82.17 kg

DRUGS (9)
  1. HUMIRA [Suspect]
     Indication: RHEUMATOID ARTHRITIS
     Dates: start: 201006, end: 201201
  2. HUMIRA [Suspect]
     Dates: start: 201301, end: 201304
  3. PREDNISONE [Concomitant]
     Indication: RHEUMATOID ARTHRITIS
  4. ALEVE [Concomitant]
     Indication: ARTHRALGIA
  5. ADVIL [Concomitant]
     Indication: ARTHRALGIA
  6. VITAMINS [Concomitant]
     Indication: RHEUMATOID ARTHRITIS
  7. DIGESTIVE ENZYMES [Concomitant]
     Indication: RHEUMATOID ARTHRITIS
  8. HYDROCHLORIC ACID [Concomitant]
     Indication: RHEUMATOID ARTHRITIS
  9. LOVENOX [Concomitant]
     Indication: ANTIPHOSPHOLIPID SYNDROME

REACTIONS (7)
  - Failed induction of labour [Recovered/Resolved]
  - Foetal placental thrombosis [Recovered/Resolved]
  - Amniotic fluid volume decreased [Recovered/Resolved]
  - Arthralgia [Not Recovered/Not Resolved]
  - Postpartum depression [Recovered/Resolved]
  - Diarrhoea [Recovered/Resolved]
  - Drug ineffective [Unknown]
